FAERS Safety Report 9830384 (Version 1)
Quarter: 2014Q1

REPORT INFORMATION
  Report Type: Spontaneous
  Country: FR (occurrence: FR)
  Receive Date: 20140120
  Receipt Date: 20140120
  Transmission Date: 20141002
  Serious: Yes (Hospitalization)
  Sender: FDA-Public Use
  Company Number: FR-JNJFOC-20140109565

PATIENT
  Age: 14 Year
  Sex: Male

DRUGS (6)
  1. IXPRIM [Suspect]
     Indication: COMPLEX REGIONAL PAIN SYNDROME
     Route: 048
     Dates: start: 2011
  2. LAROXYL [Suspect]
     Indication: MIGRAINE
     Route: 048
     Dates: start: 201309
  3. LAROXYL [Suspect]
     Indication: MIGRAINE
     Route: 048
     Dates: start: 2011, end: 201309
  4. LAROXYL [Suspect]
     Indication: COMPLEX REGIONAL PAIN SYNDROME
     Route: 048
     Dates: start: 2011, end: 201309
  5. LAROXYL [Suspect]
     Indication: COMPLEX REGIONAL PAIN SYNDROME
     Route: 048
     Dates: start: 201309
  6. VERSATIS [Suspect]
     Indication: COMPLEX REGIONAL PAIN SYNDROME
     Route: 061
     Dates: start: 2011

REACTIONS (2)
  - Medication error [Not Recovered/Not Resolved]
  - Grand mal convulsion [Recovered/Resolved]
